FAERS Safety Report 24810755 (Version 3)
Quarter: 2025Q4

REPORT INFORMATION
  Report Type: Report from Study
  Country: US (occurrence: US)
  Receive Date: 20250106
  Receipt Date: 20251013
  Transmission Date: 20260118
  Serious: No
  Sender: TG THERAPEUTICS
  Company Number: US-TG THERAPEUTICS INC.-TGT004330

PATIENT

DRUGS (6)
  1. UBLITUXIMAB [Suspect]
     Active Substance: UBLITUXIMAB
     Indication: Multiple sclerosis
     Dosage: 150 MILLIGRAM
     Route: 042
     Dates: start: 20241119, end: 20241119
  2. UBLITUXIMAB [Suspect]
     Active Substance: UBLITUXIMAB
     Dosage: 450 MILLIGRAM
     Route: 042
     Dates: start: 20241203, end: 20241203
  3. UBLITUXIMAB [Suspect]
     Active Substance: UBLITUXIMAB
     Dosage: 450 MILLIGRAM
     Route: 042
     Dates: start: 20250513, end: 20250513
  4. ADDERALL [Concomitant]
     Active Substance: AMPHETAMINE ASPARTATE\AMPHETAMINE SULFATE\DEXTROAMPHETAMINE SACCHARATE\DEXTROAMPHETAMINE SULFATE
     Indication: Product used for unknown indication
     Dosage: 30 MILLIGRAM, QD
  5. BREO ELLIPTA [Concomitant]
     Active Substance: FLUTICASONE FUROATE\VILANTEROL TRIFENATATE
     Indication: Chronic obstructive pulmonary disease
     Dosage: 200/25 MCG, QD
  6. BREO ELLIPTA [Concomitant]
     Active Substance: FLUTICASONE FUROATE\VILANTEROL TRIFENATATE
     Indication: Asthma

REACTIONS (20)
  - Pneumonia [Unknown]
  - Rhinorrhoea [Unknown]
  - Pulmonary congestion [Unknown]
  - Headache [Unknown]
  - Mood altered [Unknown]
  - Dreamy state [Unknown]
  - Illness [Unknown]
  - Inflammation [Unknown]
  - Sensitivity to weather change [Unknown]
  - Balance disorder [Unknown]
  - Speech disorder [Unknown]
  - Brain fog [Unknown]
  - Multiple sclerosis pseudo relapse [Unknown]
  - Agitation [Unknown]
  - Thought blocking [Unknown]
  - Aphasia [Unknown]
  - Multiple sclerosis [Unknown]
  - Productive cough [Recovering/Resolving]
  - Fatigue [Unknown]
  - Upper respiratory tract infection [Recovering/Resolving]

NARRATIVE: CASE EVENT DATE: 20241205
